FAERS Safety Report 10297842 (Version 3)
Quarter: 2014Q3

REPORT INFORMATION
  Report Type: Report from Study
  Country: GB (occurrence: GB)
  Receive Date: 20140711
  Receipt Date: 20140814
  Transmission Date: 20150326
  Serious: Yes (Hospitalization)
  Sender: FDA-Public Use
  Company Number: GB-NOVOPROD-415381

PATIENT
  Sex: Female
  Weight: 3.6 kg

DRUGS (14)
  1. NOVORAPID [Suspect]
     Active Substance: INSULIN ASPART
     Dosage: 21 U, QD
     Route: 064
     Dates: start: 20140128, end: 20140311
  2. LANTUS [Suspect]
     Active Substance: INSULIN GLARGINE
     Dosage: 24 U, QD
     Route: 064
     Dates: start: 20140422, end: 20140520
  3. CANESTEN COMBI [Concomitant]
     Indication: URINARY TRACT INFECTION
     Dosage: UNK
     Route: 064
     Dates: start: 20140507, end: 20140514
  4. CEFALEXIN [Concomitant]
     Active Substance: CEPHALEXIN
     Indication: URINARY TRACT INFECTION
     Dosage: UNK
     Route: 064
     Dates: start: 20140507, end: 20140514
  5. NOVORAPID [Suspect]
     Active Substance: INSULIN ASPART
     Dosage: 50 U, QD
     Route: 064
     Dates: start: 20140422, end: 20140520
  6. ACTRAPID [Suspect]
     Active Substance: INSULIN HUMAN
     Indication: PRODUCT USED FOR UNKNOWN INDICATION
     Dosage: SLIDING SCALE
     Route: 064
     Dates: start: 20140623, end: 20140623
  7. LANTUS [Suspect]
     Active Substance: INSULIN GLARGINE
     Dosage: 19 U, QD
     Route: 064
     Dates: start: 20140218, end: 20140311
  8. LANTUS [Suspect]
     Active Substance: INSULIN GLARGINE
     Dosage: 21 U, QD
     Route: 064
     Dates: start: 20140311, end: 20140422
  9. NOVORAPID [Suspect]
     Active Substance: INSULIN ASPART
     Indication: TYPE 1 DIABETES MELLITUS
     Dosage: 36 U, QD
     Route: 064
     Dates: start: 20131025, end: 20140128
  10. NOVORAPID [Suspect]
     Active Substance: INSULIN ASPART
     Dosage: 72 U, QD
     Route: 064
     Dates: start: 20140520
  11. LANTUS [Suspect]
     Active Substance: INSULIN GLARGINE
     Indication: TYPE 1 DIABETES MELLITUS
     Dosage: 18 U, QD
     Route: 064
     Dates: start: 20131025, end: 20140128
  12. LANTUS [Suspect]
     Active Substance: INSULIN GLARGINE
     Dosage: 27 U, QD
     Route: 064
     Dates: start: 20140520
  13. NOVORAPID [Suspect]
     Active Substance: INSULIN ASPART
     Dosage: 37 U, QD
     Route: 064
     Dates: start: 20140311, end: 20140422
  14. LANTUS [Suspect]
     Active Substance: INSULIN GLARGINE
     Dosage: 16 U, QD
     Route: 064
     Dates: start: 20140128, end: 20140218

REACTIONS (4)
  - Foetal exposure during pregnancy [Recovered/Resolved]
  - Jaundice neonatal [Recovered/Resolved]
  - Hypoglycaemia neonatal [Recovered/Resolved]
  - Sepsis neonatal [Recovered/Resolved]

NARRATIVE: CASE EVENT DATE: 20131025
